FAERS Safety Report 15630854 (Version 1)
Quarter: 2018Q4

REPORT INFORMATION
  Report Type: Spontaneous
  Country: US (occurrence: US)
  Receive Date: 20181119
  Receipt Date: 20181119
  Transmission Date: 20190205
  Serious: No
  Sender: FDA-Public Use
  Company Number: US-HIKMA PHARMACEUTICALS USA INC.-US-H14001-18-01864

PATIENT
  Sex: Female

DRUGS (1)
  1. CYANOCOBALAMIN. [Suspect]
     Active Substance: CYANOCOBALAMIN
     Indication: FATIGUE
     Route: 030

REACTIONS (7)
  - Feeling jittery [Unknown]
  - Intentional product use issue [Unknown]
  - Malaise [Unknown]
  - Pallor [Unknown]
  - Drug effect incomplete [Unknown]
  - Fatigue [Unknown]
  - Off label use [Unknown]
